FAERS Safety Report 5636205-1 (Version None)
Quarter: 2008Q1

REPORT INFORMATION
  Report Type: 
  Country: None (occurrence: None)
  Receive Date: 20080219
  Receipt Date: 20080206
  Transmission Date: 20080703
  Serious: Yes (Hospitalization)
  Sender: FDA-Public Use
  Company Number: 2008-00690

PATIENT
  Age: 79 Year
  Sex: Male

DRUGS (10)
  1. COLCHICUM JTL LIQ [Suspect]
     Indication: GOUTY ARTHRITIS
     Dosage: 1.5 MG, DAILY; ORAL
     Route: 048
  2. DIGOXIN [Concomitant]
  3. FUROSEMIDE [Concomitant]
  4. WARFARIN SODIUM [Concomitant]
  5. ALLOPURINOL [Concomitant]
  6. BISOPROLOL FUMARATE [Concomitant]
  7. ELTROXIN^GLAXO^ [Concomitant]
  8. ISOSORBIDE MONONITRATE [Concomitant]
  9. ASPIRIN ^BAYER^ 9ACETYLSALICYLIC ACID) [Concomitant]
  10. LANSOPRAZOLE [Concomitant]

REACTIONS (1)
  - RHABDOMYOLYSIS [None]
